FAERS Safety Report 9103697 (Version 1)
Quarter: 2013Q1

REPORT INFORMATION
  Report Type: Spontaneous
  Country: FI (occurrence: FI)
  Receive Date: 20130219
  Receipt Date: 20130219
  Transmission Date: 20140127
  Serious: Yes (Other)
  Sender: FDA-Public Use
  Company Number: FI-TEVA-386198ISR

PATIENT
  Age: 65 Year
  Sex: Female

DRUGS (1)
  1. IBUXIN [Suspect]
     Indication: PAIN IN EXTREMITY
     Dosage: 1200 MILLIGRAM DAILY;
     Route: 048
     Dates: start: 201209, end: 20130102

REACTIONS (3)
  - Nightmare [Unknown]
  - Hyperhidrosis [Unknown]
  - Delusion [Unknown]
